FAERS Safety Report 19168419 (Version 1)
Quarter: 2021Q2

REPORT INFORMATION
  Report Type: Other
  Country: JP (occurrence: JP)
  Receive Date: 20210422
  Receipt Date: 20210422
  Transmission Date: 20210717
  Serious: Yes (Other)
  Sender: FDA-Public Use
  Company Number: JP-ROCHE-2427012

PATIENT
  Age: 34 Year
  Sex: Male
  Weight: 61 kg

DRUGS (48)
  1. PREDONINE [Suspect]
     Active Substance: PREDNISOLONE
     Route: 048
     Dates: start: 20181214, end: 20181219
  2. PREDONINE [Suspect]
     Active Substance: PREDNISOLONE
     Route: 048
     Dates: start: 20190226, end: 20190311
  3. PREDONINE [Suspect]
     Active Substance: PREDNISOLONE
     Route: 048
     Dates: start: 20190329
  4. MYCOPHENOLATE MOFETIL. [Suspect]
     Active Substance: MYCOPHENOLATE MOFETIL
     Route: 048
     Dates: start: 20181124, end: 20181219
  5. RESTAMIN [Concomitant]
     Active Substance: DIPHENHYDRAMINE
     Indication: PREMEDICATION
     Route: 048
     Dates: start: 20181116, end: 20181116
  6. BASILIXIMAB [Concomitant]
     Active Substance: BASILIXIMAB
     Route: 042
     Dates: start: 20181224, end: 20181224
  7. AMOXICILLIN HYDRATE [Concomitant]
     Active Substance: AMOXICILLIN
  8. VALACICLOVIR [Concomitant]
     Active Substance: VALACYCLOVIR HYDROCHLORIDE
     Indication: INFECTION PROPHYLAXIS
     Route: 048
     Dates: start: 20181124, end: 20181219
  9. RITUXIMAB. [Suspect]
     Active Substance: RITUXIMAB
     Indication: RENAL TRANSPLANT
     Route: 041
     Dates: start: 20181116, end: 20181116
  10. RITUXIMAB. [Suspect]
     Active Substance: RITUXIMAB
     Indication: RENAL TRANSPLANT
  11. GRACEPTOR [Suspect]
     Active Substance: TACROLIMUS
     Route: 048
     Dates: start: 20181224
  12. VENILON [Concomitant]
     Active Substance: HUMAN IMMUNOGLOBULIN G
     Route: 042
     Dates: start: 20181221, end: 20181222
  13. SODIUM BICARBONATE. [Concomitant]
     Active Substance: SODIUM BICARBONATE
     Indication: ACIDOSIS
     Route: 048
     Dates: start: 20181219
  14. RITUXIMAB. [Suspect]
     Active Substance: RITUXIMAB
     Indication: PROPHYLAXIS AGAINST TRANSPLANT REJECTION
     Route: 041
     Dates: start: 20181219, end: 20181219
  15. PREDONINE [Suspect]
     Active Substance: PREDNISOLONE
     Indication: RENAL TRANSPLANT
     Route: 048
     Dates: start: 20181116, end: 20181124
  16. MYCOPHENOLATE MOFETIL. [Suspect]
     Active Substance: MYCOPHENOLATE MOFETIL
     Indication: RENAL TRANSPLANT
     Route: 048
     Dates: start: 20181115, end: 20181123
  17. MYCOPHENOLATE MOFETIL. [Suspect]
     Active Substance: MYCOPHENOLATE MOFETIL
     Route: 048
     Dates: start: 20190104
  18. GRACEPTOR [Concomitant]
     Active Substance: TACROLIMUS
     Dosage: 5.9?10.5 NG/ML
     Route: 048
     Dates: start: 20181219, end: 20181223
  19. VALIXA [Concomitant]
     Active Substance: VALGANCICLOVIR
     Indication: INFECTION PROPHYLAXIS
     Route: 048
     Dates: start: 20181224, end: 20190730
  20. DIPHENHYDRAMINE HYDROCHLORIDE. [Concomitant]
     Active Substance: DIPHENHYDRAMINE HYDROCHLORIDE
     Indication: PREMEDICATION
     Route: 048
  21. PREDONINE [Suspect]
     Active Substance: PREDNISOLONE
     Route: 048
     Dates: start: 20190122, end: 20190204
  22. MYCOPHENOLATE MOFETIL. [Suspect]
     Active Substance: MYCOPHENOLATE MOFETIL
     Route: 048
     Dates: start: 20181221, end: 20190103
  23. BASILIXIMAB [Concomitant]
     Active Substance: BASILIXIMAB
     Route: 042
     Dates: start: 20181220, end: 20181220
  24. PREDONINE [Suspect]
     Active Substance: PREDNISOLONE
     Route: 048
     Dates: start: 20181221, end: 20181221
  25. PREDONINE [Suspect]
     Active Substance: PREDNISOLONE
     Route: 048
     Dates: start: 20181224, end: 20181224
  26. PREDONINE [Suspect]
     Active Substance: PREDNISOLONE
     Route: 048
     Dates: start: 20181231, end: 20190107
  27. SOL?MELCORT [Concomitant]
     Active Substance: METHYLPREDNISOLONE SODIUM SUCCINATE
     Route: 042
     Dates: start: 20181220, end: 20181220
  28. RITUXIMAB. [Suspect]
     Active Substance: RITUXIMAB
     Indication: PROPHYLAXIS AGAINST TRANSPLANT REJECTION
  29. GRACEPTOR [Suspect]
     Active Substance: TACROLIMUS
     Indication: RENAL TRANSPLANT
     Route: 048
     Dates: start: 20181216, end: 20181218
  30. PREDONINE [Suspect]
     Active Substance: PREDNISOLONE
     Route: 048
     Dates: start: 20190205, end: 20190225
  31. GRACEPTOR [Concomitant]
     Active Substance: TACROLIMUS
     Dosage: 4.4?8.8 NG/ML
     Route: 048
     Dates: start: 20181224
  32. FEBURIC [Concomitant]
     Active Substance: FEBUXOSTAT
     Indication: HYPERURICAEMIA
     Route: 048
     Dates: start: 20181219
  33. GRACEPTOR [Suspect]
     Active Substance: TACROLIMUS
     Route: 048
     Dates: start: 20181219, end: 20181223
  34. PREDONINE [Suspect]
     Active Substance: PREDNISOLONE
     Route: 048
     Dates: start: 20190312, end: 20190328
  35. LOXOPROFEN [Concomitant]
     Active Substance: LOXOPROFEN
     Indication: PREMEDICATION
     Route: 048
     Dates: start: 20181116, end: 20181116
  36. GRACEPTOR [Concomitant]
     Active Substance: TACROLIMUS
     Dosage: 4.8?8.5 NG/ML
     Route: 048
     Dates: start: 20181216, end: 20181218
  37. PREDONINE [Concomitant]
     Active Substance: PREDNISOLONE
     Route: 042
     Dates: start: 20181221, end: 20181221
  38. KREMEZIN [Concomitant]
     Active Substance: ACTIVATED CHARCOAL
     Indication: CHRONIC KIDNEY DISEASE
     Route: 048
     Dates: start: 20181219
  39. RABEPRAZOLE SODIUM. [Concomitant]
     Active Substance: RABEPRAZOLE SODIUM
     Indication: PROPHYLAXIS
     Route: 048
     Dates: start: 20181213
  40. PREDONINE [Suspect]
     Active Substance: PREDNISOLONE
     Route: 048
     Dates: start: 20181222, end: 20181222
  41. PREDONINE [Suspect]
     Active Substance: PREDNISOLONE
     Route: 048
     Dates: start: 20181223, end: 20181223
  42. PREDONINE [Suspect]
     Active Substance: PREDNISOLONE
     Route: 048
     Dates: start: 20181225, end: 20181230
  43. PREDONINE [Suspect]
     Active Substance: PREDNISOLONE
     Route: 048
     Dates: start: 20190108, end: 20190121
  44. LOXOPROFEN [Concomitant]
     Active Substance: LOXOPROFEN
     Route: 048
     Dates: start: 20181219, end: 20181219
  45. RESTAMIN [Concomitant]
     Active Substance: DIPHENHYDRAMINE
     Route: 048
     Dates: start: 20181219, end: 20181219
  46. PREDONINE [Concomitant]
     Active Substance: PREDNISOLONE
     Route: 042
     Dates: start: 20181220, end: 20181220
  47. SARPOGRELATE HYDROCHLORIDE [Concomitant]
     Active Substance: SARPOGRELATE HYDROCHLORIDE
     Indication: THROMBOSIS PROPHYLAXIS
     Route: 048
     Dates: start: 20181222
  48. BAKTAR [Concomitant]
     Active Substance: SULFAMETHOXAZOLE\TRIMETHOPRIM
     Indication: INFECTION PROPHYLAXIS
     Route: 048
     Dates: start: 20181224

REACTIONS (4)
  - Hypertension [Recovering/Resolving]
  - Anaemia [Recovering/Resolving]
  - Renal impairment [Not Recovered/Not Resolved]
  - Streptococcal infection [Recovered/Resolved]

NARRATIVE: CASE EVENT DATE: 20190305
